FAERS Safety Report 6025436-7 (Version None)
Quarter: 2008Q4

REPORT INFORMATION
  Report Type: 
  Country: None (occurrence: None)
  Receive Date: 20081229
  Receipt Date: 20081229
  Transmission Date: 20090506
  Serious: Yes (Other)
  Sender: FDA-Public Use
  Company Number: None

PATIENT
  Age: 64 Year
  Sex: Male
  Weight: 70.3075 kg

DRUGS (1)
  1. ZANAFLEX [Suspect]
     Indication: MUSCLE SPASMS
     Dosage: 4 MG CAPSULE 1 AT BEDTIME PO
     Route: 048
     Dates: start: 20081215, end: 20081216

REACTIONS (7)
  - CHILLS [None]
  - DRY MOUTH [None]
  - MIDDLE INSOMNIA [None]
  - NAUSEA [None]
  - OROPHARYNGEAL PAIN [None]
  - RETCHING [None]
  - SPEECH DISORDER [None]
